FAERS Safety Report 5968800-4 (Version None)
Quarter: 2008Q4

REPORT INFORMATION
  Report Type: 
  Country: None (occurrence: None)
  Receive Date: 20081126
  Receipt Date: 20081119
  Transmission Date: 20090506
  Serious: Yes (Hospitalization)
  Sender: FDA-Public Use
  Company Number: DE-ROCHE-598436

PATIENT
  Sex: Male
  Weight: 105 kg

DRUGS (3)
  1. INTERFERON ALFA-2A [Suspect]
     Indication: METASTATIC RENAL CELL CARCINOMA
     Dosage: 3 MIU 3X/WEEK IN WEEK 1,  9 MIU 3X/WEEK IN WEEK 2,  18 MIU 3X/WEEK FROM WEEK 3 ON UNTIL WEEK 51
     Route: 058
     Dates: start: 20080529
  2. BEVACIZUMAB [Suspect]
     Indication: METASTATIC RENAL CELL CARCINOMA
     Route: 042
     Dates: start: 20080529
  3. VINBLASTINE SULFATE [Suspect]
     Indication: METASTATIC RENAL CELL CARCINOMA
     Dosage: 0.1 MG/KG BODY WEIGHT I.V. EVERY 3 WEEKS UNTIL WEEK 51
     Route: 042
     Dates: start: 20080529

REACTIONS (1)
  - PULMONARY EMBOLISM [None]
